FAERS Safety Report 12811602 (Version 1)
Quarter: 2016Q4

REPORT INFORMATION
  Report Type: Spontaneous
  Country: US (occurrence: US)
  Receive Date: 20161005
  Receipt Date: 20161005
  Transmission Date: 20170207
  Serious: No
  Sender: FDA-Public Use
  Company Number: US-AMGEN-USASP2016104749

PATIENT
  Age: 62 Year
  Sex: Female

DRUGS (2)
  1. DIOVAN [Concomitant]
     Active Substance: VALSARTAN
     Dosage: 40 MG, QD
  2. PROLIA [Suspect]
     Active Substance: DENOSUMAB
     Indication: OSTEOPOROSIS
     Dosage: UNK
     Route: 065

REACTIONS (9)
  - Headache [Unknown]
  - Loose tooth [Unknown]
  - Tooth fracture [Unknown]
  - Device failure [Unknown]
  - Feeling abnormal [Unknown]
  - Nervousness [Unknown]
  - Tooth disorder [Unknown]
  - Hypertension [Recovered/Resolved]
  - Epistaxis [Unknown]
